FAERS Safety Report 5912164-9 (Version None)
Quarter: 2008Q4

REPORT INFORMATION
  Report Type: 
  Country: None (occurrence: None)
  Receive Date: 20081003
  Receipt Date: 20081003
  Transmission Date: 20090506
  Serious: No
  Sender: FDA-Public Use
  Company Number: None

PATIENT

DRUGS (1)
  1. CALCIUM GLUCONATE [Suspect]
     Indication: HYPERKALAEMIA
     Dosage: 200MG ONCE IV
     Route: 042
     Dates: start: 20081002, end: 20081002

REACTIONS (2)
  - INCORRECT DOSE ADMINISTERED [None]
  - MEDICATION ERROR [None]
